FAERS Safety Report 5995607-4 (Version None)
Quarter: 2008Q4

REPORT INFORMATION
  Report Type: 
  Country: None (occurrence: None)
  Receive Date: 20081212
  Receipt Date: 20081002
  Transmission Date: 20090506
  Serious: No
  Sender: FDA-Public Use
  Company Number: US-ABBOTT-08P-163-0479461-00

PATIENT
  Sex: Female

DRUGS (4)
  1. HUMIRA [Suspect]
     Indication: CROHN'S DISEASE
     Route: 050
     Dates: start: 20080416
  2. MESALAMINE [Concomitant]
     Indication: DRUG USE FOR UNKNOWN INDICATION
  3. BROMIDE SULFATE [Concomitant]
     Indication: DRUG USE FOR UNKNOWN INDICATION
  4. YAZ [Concomitant]
     Indication: CONTRACEPTION

REACTIONS (4)
  - FATIGUE [None]
  - INJECTION SITE SWELLING [None]
  - LACRIMATION INCREASED [None]
  - RHINORRHOEA [None]
